FAERS Safety Report 5108885-0 (Version None)
Quarter: 2006Q3

REPORT INFORMATION
  Report Type: 
  Country: None (occurrence: None)
  Receive Date: 20060915
  Receipt Date: 20060915
  Transmission Date: 20061208
  Serious: Yes (Hospitalization)
  Sender: FDA-Public Use
  Company Number: None

PATIENT
  Age: 47 Year
  Sex: Female
  Weight: 120.8 kg

DRUGS (16)
  1. VP 16 MUD [Suspect]
     Indication: ACUTE LYMPHOCYTIC LEUKAEMIA
     Dosage: 3850MG/IV
     Route: 042
     Dates: start: 20060826
  2. VP 16 MUD [Suspect]
     Indication: CHEMOTHERAPY
     Dosage: 3850MG/IV
     Route: 042
     Dates: start: 20060826
  3. TBI [Suspect]
     Indication: ACUTE LYMPHOCYTIC LEUKAEMIA
     Dosage: 1350 CGY
     Dates: start: 20060823, end: 20060826
  4. TBI [Suspect]
     Indication: CHEMOTHERAPY
     Dosage: 1350 CGY
     Dates: start: 20060823, end: 20060826
  5. FLUCONAZOLE [Concomitant]
  6. ZOSYN [Concomitant]
  7. VORICONAZOLE [Concomitant]
  8. ACYCLOVIR [Concomitant]
  9. CIRPOFLOXACIN [Concomitant]
  10. ESOMEPRAZOLE MAGNESIUM [Concomitant]
  11. CLONIDINE HCL [Concomitant]
  12. PAROXETINE HCL [Concomitant]
  13. NEUPOGEN [Concomitant]
  14. ACTIGALL [Concomitant]
  15. CYCLOSPORINE [Concomitant]
  16. MORPHINE [Concomitant]

REACTIONS (11)
  - CHEST PAIN [None]
  - COMMUNICATION DISORDER [None]
  - CONDITION AGGRAVATED [None]
  - CONFUSIONAL STATE [None]
  - DYSPNOEA [None]
  - FLUID OVERLOAD [None]
  - HYPERTENSION [None]
  - PLEURITIC PAIN [None]
  - POST PROCEDURAL COMPLICATION [None]
  - RESPIRATORY DISTRESS [None]
  - STEM CELL TRANSPLANT [None]
